FAERS Safety Report 15230971 (Version 1)
Quarter: 2018Q3

REPORT INFORMATION
  Report Type: Spontaneous
  Country: US (occurrence: US)
  Receive Date: 20180802
  Receipt Date: 20180802
  Transmission Date: 20181010
  Serious: Yes (Other)
  Sender: FDA-Public Use
  Company Number: US-ACCORD-063606

PATIENT
  Age: 63 Year
  Sex: Female
  Weight: 87.54 kg

DRUGS (17)
  1. LETROZOLE. [Concomitant]
     Active Substance: LETROZOLE
     Dates: start: 201109, end: 20170728
  2. ZOFRAN [Concomitant]
     Active Substance: ONDANSETRON HYDROCHLORIDE
     Dosage: STRENGTH: 16 MG
  3. NEUPOGEN [Concomitant]
     Active Substance: FILGRASTIM
  4. HERCEPTIN [Suspect]
     Active Substance: TRASTUZUMAB
     Indication: INVASIVE DUCTAL BREAST CARCINOMA
     Dosage: STRENGTH: 6 MG/KG, 5 CYC,??ALSO RECEIVED ON 20?OCT?2011, 10?NOV?2011 AND 01?DEC?2011.
     Route: 042
     Dates: start: 20110929, end: 20111222
  5. ATORVASTATIN [Concomitant]
     Active Substance: ATORVASTATIN
     Dates: start: 201008
  6. FAMOTIDINE. [Concomitant]
     Active Substance: FAMOTIDINE
     Dates: start: 20161110
  7. HYDROCODONE BITARTRATE/PARACETAMOL [Concomitant]
     Indication: PAIN
     Dosage: STRENGTH: 5?500 MG,??TAKE 1 TABLET EVERY 4 HOURS AS NEEDED
     Route: 048
  8. DOCETAXEL ACCORD [Suspect]
     Active Substance: DOCETAXEL
     Indication: INVASIVE DUCTAL BREAST CARCINOMA
     Dosage: STRENGTH: 147 MG, 5 CYCLES??ALSO RECEIVED ON 20?OCT?2011, 10?NOV?2011 AND 01?DEC?2011
     Route: 042
     Dates: start: 20110929, end: 20111222
  9. AZULFIDINE [Concomitant]
     Active Substance: SULFASALAZINE
     Dosage: STRENGTH: 500 MG,??TAKE 1 TABLET ORALLY 2 TIMES DAILY
     Route: 048
     Dates: start: 201203
  10. LEFLUNOMIDE. [Concomitant]
     Active Substance: LEFLUNOMIDE
     Dosage: STRENGTH: 20 MG,??DOSE: TAKE 1 TABLET ORALLY DAILY
     Route: 048
     Dates: start: 201103
  11. PROAIR HFA [Concomitant]
     Active Substance: ALBUTEROL SULFATE
     Dosage: INHALE 2 PUFFS ORALLY EVERY 6 HOURS
  12. CARBOPLATIN. [Suspect]
     Active Substance: CARBOPLATIN
     Indication: INVASIVE DUCTAL BREAST CARCINOMA
     Dosage: STRENGTH: 530 MG, 5 CYCLES,??ALSO RECEIVED ON 20?OCT?2011, 10?NOV?2011 AND 01?DEC?2011
     Dates: start: 20110929, end: 20111222
  13. PLAQUENIL [Concomitant]
     Active Substance: HYDROXYCHLOROQUINE SULFATE
     Dosage: STRENGTH: 200 MG
     Route: 048
     Dates: start: 199401, end: 201710
  14. CALCIUM CARBONATE/CALCIUM LACTOGLUCONATE [Concomitant]
     Dates: start: 199501
  15. ERGOCALCIFEROL. [Concomitant]
     Active Substance: ERGOCALCIFEROL
     Dates: start: 199501
  16. DOCUSATE [Concomitant]
     Active Substance: DOCUSATE
     Dosage: STRENGTH: 100 MG,??DOSE: 1 CAPSULE ORALLY TWICE A DAY
     Route: 048
  17. FLUTICASONE. [Concomitant]
     Active Substance: FLUTICASONE

REACTIONS (1)
  - Alopecia [Not Recovered/Not Resolved]

NARRATIVE: CASE EVENT DATE: 201110
